FAERS Safety Report 5944767-X (Version None)
Quarter: 2008Q4

REPORT INFORMATION
  Report Type: 
  Country: None (occurrence: None)
  Receive Date: 20081107
  Receipt Date: 20081103
  Transmission Date: 20090506
  Serious: Yes (Life-Threatening)
  Sender: FDA-Public Use
  Company Number: DE-ASTRAZENECA-2008PK02393

PATIENT
  Age: 38 Year
  Sex: Male
  Weight: 113 kg

DRUGS (3)
  1. SEROQUEL [Suspect]
     Indication: PSYCHOTIC DISORDER
     Route: 048
  2. SOLVEX [Concomitant]
     Indication: PSYCHOTIC DISORDER
     Route: 048
  3. AMISULPRID [Concomitant]
     Indication: PSYCHOTIC DISORDER
     Route: 048

REACTIONS (4)
  - BLOOD GLUCOSE INCREASED [None]
  - HYPONATRAEMIA [None]
  - PROTEINURIA [None]
  - WEIGHT INCREASED [None]
